FAERS Safety Report 21026176 (Version 1)
Quarter: 2022Q2

REPORT INFORMATION
  Report Type: Spontaneous
  Country: IT (occurrence: IT)
  Receive Date: 20220630
  Receipt Date: 20220630
  Transmission Date: 20220720
  Serious: Yes (Death, Hospitalization, Other)
  Sender: FDA-Public Use
  Company Number: IT-BoehringerIngelheim-2022-BI-178565

PATIENT
  Age: 81 Year
  Sex: Male

DRUGS (2)
  1. DABIGATRAN [Suspect]
     Active Substance: DABIGATRAN
     Indication: Atrial fibrillation
     Route: 048
  2. MYSOLINE [Concomitant]
     Active Substance: PRIMIDONE
     Indication: Tremor

REACTIONS (4)
  - Death [Fatal]
  - Cerebral ischaemia [Unknown]
  - Sepsis [Unknown]
  - Claustrophobia [Unknown]
